FAERS Safety Report 5654424-5 (Version None)
Quarter: 2008Q1

REPORT INFORMATION
  Report Type: 
  Country: None (occurrence: None)
  Receive Date: 20080305
  Receipt Date: 20080221
  Transmission Date: 20080703
  Serious: Yes (Hospitalization)
  Sender: FDA-Public Use
  Company Number: 2007BI009975

PATIENT
  Age: 47 Year
  Sex: Male

DRUGS (17)
  1. TYSABRI [Suspect]
     Indication: MULTIPLE SCLEROSIS
     Dosage: 300 MG; QM; IM
     Route: 030
     Dates: start: 20061011
  2. BACTRIM [Concomitant]
  3. AMBIEN [Concomitant]
  4. NEXIUM [Concomitant]
  5. NAPROSYN [Concomitant]
  6. ATIVAN [Concomitant]
  7. LYRICA [Concomitant]
  8. FLEXERIL [Concomitant]
  9. BUSPAR [Concomitant]
  10. DANTRIUM [Concomitant]
  11. REMERON [Concomitant]
  12. COMBIVENT [Concomitant]
  13. AZMACORT [Concomitant]
  14. OXYTROL [Concomitant]
  15. FENTANYL DURAGESIC PATCH [Concomitant]
  16. SENOKOT [Concomitant]
  17. LORTAB [Concomitant]

REACTIONS (6)
  - CARDIAC PERFORATION [None]
  - CONDITION AGGRAVATED [None]
  - DRUG INTERACTION [None]
  - EJECTION FRACTION DECREASED [None]
  - EMBOLIC STROKE [None]
  - MULTIPLE SCLEROSIS [None]
